FAERS Safety Report 9980444 (Version 1)
Quarter: 2014Q1

REPORT INFORMATION
  Report Type: Report from Study
  Country: US (occurrence: US)
  Receive Date: 20140307
  Receipt Date: 20140307
  Transmission Date: 20141002
  Serious: Yes (Other)
  Sender: FDA-Public Use
  Company Number: US-ROCHE-1343747

PATIENT
  Sex: Male

DRUGS (10)
  1. AVASTIN [Suspect]
     Indication: DIABETIC RETINAL OEDEMA
     Route: 050
     Dates: start: 20110621
  2. AVASTIN [Suspect]
     Indication: CATARACT
  3. AVASTIN [Suspect]
     Indication: RETINAL OEDEMA
  4. AVASTIN [Suspect]
     Indication: DIABETIC RETINOPATHY
  5. LUCENTIS [Suspect]
     Indication: DIABETIC RETINOPATHY
     Route: 050
     Dates: start: 20110818
  6. LUCENTIS [Suspect]
     Indication: DIABETIC RETINAL OEDEMA
  7. LUCENTIS [Suspect]
     Indication: CATARACT
  8. LUCENTIS [Suspect]
     Indication: RETINAL OEDEMA
  9. HUMULIN INSULIN [Concomitant]
     Dosage: 25 U -O-150 (70:30)
     Route: 065
  10. TIMOLOL [Concomitant]
     Dosage: BID OD
     Route: 047

REACTIONS (5)
  - Meibomianitis [Unknown]
  - Eye infection [Unknown]
  - Glaucoma [Unknown]
  - Cutis laxa [Unknown]
  - Visual acuity reduced [Unknown]
